FAERS Safety Report 5803327-1 (Version None)
Quarter: 2008Q3

REPORT INFORMATION
  Report Type: 
  Country: None (occurrence: None)
  Receive Date: 20080708
  Receipt Date: 20080627
  Transmission Date: 20090109
  Serious: Yes (Death)
  Sender: FDA-Public Use
  Company Number: FR-AVENTIS-200812464FR

PATIENT
  Age: 71 Year
  Sex: Female

DRUGS (7)
  1. LOVENOX [Suspect]
     Route: 058
     Dates: start: 20080429, end: 20080505
  2. LOVENOX [Suspect]
     Indication: AORTIC VALVE REPLACEMENT
     Route: 058
     Dates: start: 20080429, end: 20080505
  3. HEPARIN [Suspect]
     Indication: AORTIC VALVE REPLACEMENT
     Route: 042
     Dates: start: 20080423, end: 20080428
  4. INIPOMP                            /01263201/ [Concomitant]
     Route: 048
     Dates: start: 20080424
  5. LASIX [Concomitant]
     Route: 048
     Dates: start: 20080424
  6. COAPROVEL [Concomitant]
     Route: 048
  7. CORDARONE [Concomitant]
     Indication: ATRIAL FIBRILLATION
     Dates: start: 20080423

REACTIONS (1)
  - HEPARIN-INDUCED THROMBOCYTOPENIA [None]
